FAERS Safety Report 15839981 (Version 1)
Quarter: 2019Q1

REPORT INFORMATION
  Report Type: Spontaneous
  Country: US (occurrence: US)
  Receive Date: 20190117
  Receipt Date: 20190117
  Transmission Date: 20190417
  Serious: No
  Sender: FDA-Public Use
  Company Number: US-PFIZER INC-2017508783

PATIENT
  Age: 45 Year
  Sex: Female
  Weight: 90.72 kg

DRUGS (1)
  1. GENOTROPIN [Suspect]
     Active Substance: SOMATROPIN
     Indication: GROWTH HORMONE DEFICIENCY
     Dosage: 0.3 MG, 1X/DAY

REACTIONS (5)
  - Wrong technique in product usage process [Unknown]
  - Galactorrhoea [Not Recovered/Not Resolved]
  - Dry skin [Unknown]
  - Constipation [Unknown]
  - Product dose omission [Unknown]

NARRATIVE: CASE EVENT DATE: 20180102
